FAERS Safety Report 17483212 (Version 2)
Quarter: 2020Q1

REPORT INFORMATION
  Report Type: Report from Study
  Country: CA (occurrence: CA)
  Receive Date: 20200302
  Receipt Date: 20200303
  Transmission Date: 20200409
  Serious: Yes (Other)
  Sender: FDA-Public Use
  Company Number: CA-PFIZER INC-2020088775

PATIENT
  Age: 19 Year
  Sex: Female
  Weight: 121 kg

DRUGS (7)
  1. MEDROXYPROGESTERONE ACETATE. [Concomitant]
     Active Substance: MEDROXYPROGESTERONE ACETATE
     Indication: OFF LABEL USE
     Dosage: UNK UNK, 1 EVERY 3 MONTHS
  2. LEAD [Suspect]
     Active Substance: LEAD
     Indication: OFF LABEL USE
     Route: 065
  3. VOLTAREN [DICLOFENAC] [Concomitant]
     Active Substance: DICLOFENAC SODIUM
     Indication: OFF LABEL USE
  4. METHOTREXATE SODIUM. [Suspect]
     Active Substance: METHOTREXATE SODIUM
     Indication: OFF LABEL USE
     Route: 048
  5. ACTEMRA [Suspect]
     Active Substance: TOCILIZUMAB
     Indication: OFF LABEL USE
     Dosage: 800 MG, 1 EVERY 3 WEEKS
  6. FOLIC ACID. [Concomitant]
     Active Substance: FOLIC ACID
     Indication: OFF LABEL USE
     Route: 065
  7. ACTEMRA [Suspect]
     Active Substance: TOCILIZUMAB
     Indication: RHEUMATOID ARTHRITIS
     Dosage: 800 MG, 1 EVERY 4 WEEKS
     Route: 042

REACTIONS (9)
  - Drug hypersensitivity [Not Recovered/Not Resolved]
  - Off label use [Not Recovered/Not Resolved]
  - Intentional product misuse [Not Recovered/Not Resolved]
  - Cellulitis [Not Recovered/Not Resolved]
  - Dermatitis contact [Not Recovered/Not Resolved]
  - Headache [Not Recovered/Not Resolved]
  - Injection site cellulitis [Not Recovered/Not Resolved]
  - Sensitive skin [Not Recovered/Not Resolved]
  - Product use in unapproved indication [Not Recovered/Not Resolved]
